FAERS Safety Report 8030904-2 (Version None)
Quarter: 2012Q1

REPORT INFORMATION
  Report Type: 
  Country: None (occurrence: None)
  Receive Date: 20120109
  Receipt Date: 20111229
  Transmission Date: 20120608
  Serious: Yes (Hospitalization, Other)
  Sender: FDA-Public Use
  Company Number: ZA-ROCHE-587182

PATIENT
  Sex: Female

DRUGS (9)
  1. MEPERIDINE HCL [Concomitant]
     Indication: PREMEDICATION
     Dates: start: 20070213, end: 20070719
  2. MABTHERA [Suspect]
     Dosage: MAINTENANCE TREATMENT
     Route: 042
  3. ACETAMINOPHEN [Concomitant]
     Indication: PREMEDICATION
     Dates: start: 20070213, end: 20070719
  4. MABTHERA [Suspect]
     Indication: CHRONIC LYMPHOCYTIC LEUKAEMIA
     Route: 042
     Dates: start: 20070213, end: 20070719
  5. ZAMANON [Concomitant]
     Indication: CHRONIC LYMPHOCYTIC LEUKAEMIA
     Dosage: DRUG NAME: ZAMMONON
     Dates: start: 20070213, end: 20070719
  6. CHEMOTHERAPY NOS [Concomitant]
  7. MEPYRAMINE [Concomitant]
     Indication: CHRONIC LYMPHOCYTIC LEUKAEMIA
     Dates: start: 20070213, end: 20070719
  8. MABTHERA [Suspect]
     Dosage: MAINTENANCE TREATMENT
     Route: 042
  9. FLUDARA [Concomitant]
     Indication: CHRONIC LYMPHOCYTIC LEUKAEMIA
     Dates: start: 20070213, end: 20070719

REACTIONS (8)
  - CREUTZFELDT-JAKOB DISEASE [None]
  - SALMONELLOSIS [None]
  - MYALGIA [None]
  - PROGRESSIVE MULTIFOCAL LEUKOENCEPHALOPATHY [None]
  - PYREXIA [None]
  - DIARRHOEA [None]
  - ASTHENIA [None]
  - PNEUMOCYSTIS JIROVECI PNEUMONIA [None]
